FAERS Safety Report 25703794 (Version 2)
Quarter: 2025Q3

REPORT INFORMATION
  Report Type: Spontaneous
  Country: US (occurrence: US)
  Receive Date: 20250820
  Receipt Date: 20250921
  Transmission Date: 20251020
  Serious: No
  Sender: BEIGENE
  Company Number: US-BEIGENE-BGN-2025-012634

PATIENT
  Age: 76 Year

DRUGS (2)
  1. BRUKINSA [Suspect]
     Active Substance: ZANUBRUTINIB
     Indication: Chronic lymphocytic leukaemia
  2. BRUKINSA [Suspect]
     Active Substance: ZANUBRUTINIB
     Indication: B-cell small lymphocytic lymphoma

REACTIONS (1)
  - Brain fog [Unknown]
